FAERS Safety Report 8127149-4 (Version None)
Quarter: 2012Q1

REPORT INFORMATION
  Report Type: 
  Country: None (occurrence: None)
  Receive Date: 20120210
  Receipt Date: 20120206
  Transmission Date: 20120608
  Serious: Yes (Death, Other)
  Sender: FDA-Public Use
  Company Number: FR-PFIZER INC-2012031382

PATIENT
  Age: 61 Year
  Sex: Female

DRUGS (13)
  1. CLONAZEPAM [Suspect]
     Indication: BONE PAIN
     Dosage: 3 DROPS 1 TIME DAILY
     Route: 048
     Dates: start: 20101117
  2. LYRICA [Suspect]
     Indication: BONE PAIN
     Dosage: 25 MG, 2X/DAY
     Route: 048
     Dates: start: 20111117
  3. AVASTIN [Suspect]
     Indication: CHEMOTHERAPY
     Dosage: 15 MG/KG, EVERY 3 WEEKS
     Route: 042
     Dates: start: 20100701, end: 20111117
  4. LOVENOX [Concomitant]
     Dosage: 0.4 MG, 1X/DAY
     Route: 058
  5. PRIMPERAN TAB [Suspect]
     Indication: VOMITING
     Dosage: UNK
     Route: 048
     Dates: start: 20111126
  6. ARIMIDEX [Suspect]
     Indication: BREAST CANCER METASTATIC
     Dosage: UNK
     Route: 048
     Dates: start: 20110106, end: 20111117
  7. DURAGESIC-100 [Concomitant]
     Dosage: 12 A?G, EVERY 3 DAYS
     Dates: end: 20111125
  8. ACETAMINOPHEN [Concomitant]
     Dosage: 1 G, 4X/DAY
  9. ZOMETA [Suspect]
     Indication: METASTASES TO BONE
     Dosage: 4 MG, EVERY 3 WEEKS
     Route: 042
     Dates: start: 20110106, end: 20111121
  10. ORAMORPH SR [Concomitant]
     Dosage: 5 MG, EVERY 4 HRS, IF NEEDED
  11. AVASTIN [Suspect]
     Indication: METASTASES TO BONE
  12. LOXEN [Suspect]
     Indication: HYPERTENSION
     Dosage: UNK
     Dates: start: 20111123
  13. NEXIUM [Suspect]
     Dosage: UNK
     Dates: start: 20111122

REACTIONS (2)
  - INTESTINAL INFARCTION [None]
  - HYPERTENSION [None]
